FAERS Safety Report 20038055 (Version 1)
Quarter: 2021Q4

REPORT INFORMATION
  Report Type: Spontaneous
  Country: US (occurrence: US)
  Receive Date: 20211105
  Receipt Date: 20211105
  Transmission Date: 20220304
  Serious: No
  Sender: FDA-Public Use
  Company Number: US-PFIZER INC-2021408713

PATIENT
  Age: 75 Year
  Sex: Female
  Weight: 73.48 kg

DRUGS (2)
  1. HYDROCORTISONE ACETATE [Suspect]
     Active Substance: HYDROCORTISONE ACETATE
     Indication: Skin disorder
     Dosage: 1 %
     Dates: end: 20210411
  2. KETOCONAZOLE [Concomitant]
     Active Substance: KETOCONAZOLE
     Dosage: UNK

REACTIONS (2)
  - Intentional product use issue [Unknown]
  - Drug ineffective for unapproved indication [Unknown]
